FAERS Safety Report 11024810 (Version 1)
Quarter: 2015Q2

REPORT INFORMATION
  Report Type: Spontaneous
  Country: BR (occurrence: None)
  Receive Date: 20150410
  Receipt Date: 20150410
  Transmission Date: 20150821
  Serious: Yes (Other)
  Sender: FDA-Public Use
  Company Number: 2015HINOTH0315

PATIENT
  Age: 28 Year
  Sex: Female

DRUGS (2)
  1. LAMIVUDINE + ZIDOVUDINE (LAMIVUDINE, ZIDOVUDINE) [Suspect]
     Active Substance: LAMIVUDINE\ZIDOVUDINE
     Indication: HIV INFECTION
     Dosage: 2 TAB/CAP
     Route: 048
     Dates: start: 20141015
  2. LOPINAVIR+RITONAVIR [Suspect]
     Active Substance: LOPINAVIR\RITONAVIR
     Indication: HIV INFECTION
     Dosage: 4 TAB/CAP
     Route: 048
     Dates: start: 20141015

REACTIONS (2)
  - Abortion spontaneous [None]
  - Maternal exposure during pregnancy [None]
